FAERS Safety Report 5571300-7 (Version None)
Quarter: 2007Q4

REPORT INFORMATION
  Report Type: 
  Country: None (occurrence: None)
  Receive Date: 20071221
  Receipt Date: 20070621
  Transmission Date: 20080405
  Serious: No
  Sender: FDA-Public Use
  Company Number: A0651657A

PATIENT
  Age: 81 Year
  Sex: Female
  Weight: 50 kg

DRUGS (4)
  1. FLUTICASONE PROPIONATE [Suspect]
     Indication: DRUG USE FOR UNKNOWN INDICATION
     Dosage: 4SPR PER DAY
     Route: 045
     Dates: start: 20041101
  2. CARDIZEM [Concomitant]
     Dates: start: 20061201
  3. POTASSIUM CHLORIDE [Concomitant]
  4. HYDROCHLOROTHIAZIDE [Concomitant]
     Dates: start: 20020101

REACTIONS (3)
  - DRUG INEFFECTIVE [None]
  - EXPIRED DRUG ADMINISTERED [None]
  - PHARMACEUTICAL PRODUCT COMPLAINT [None]
